FAERS Safety Report 17794573 (Version 1)
Quarter: 2020Q2

REPORT INFORMATION
  Report Type: Spontaneous
  Country: SE (occurrence: SE)
  Receive Date: 20200515
  Receipt Date: 20200515
  Transmission Date: 20200714
  Serious: Yes (Life-Threatening, Hospitalization)
  Sender: FDA-Public Use
  Company Number: SE-BAYER-2020-076377

PATIENT
  Age: 42 Year
  Sex: Male
  Weight: 85 kg

DRUGS (1)
  1. CHLOROQUINE. [Suspect]
     Active Substance: CHLOROQUINE
     Indication: CORONAVIRUS INFECTION
     Dosage: 2 TABLETS MORNING, 2 TABLETS EVENING X 7 DAYS
     Route: 048
     Dates: start: 20200323, end: 20200329

REACTIONS (12)
  - Dizziness [Unknown]
  - Head discomfort [Unknown]
  - Vomiting [Recovering/Resolving]
  - Venous pressure abnormal [Unknown]
  - Balance disorder [Recovering/Resolving]
  - Heart rate increased [Recovering/Resolving]
  - Headache [Recovering/Resolving]
  - Diplopia [Recovering/Resolving]
  - Visual field defect [Recovering/Resolving]
  - Muscle spasms [Recovering/Resolving]
  - Vision blurred [Unknown]
  - Diarrhoea [Unknown]

NARRATIVE: CASE EVENT DATE: 20200325
